FAERS Safety Report 8561986-7 (Version None)
Quarter: 2012Q3

REPORT INFORMATION
  Report Type: 
  Country: None (occurrence: None)
  Receive Date: 20120802
  Receipt Date: 20120702
  Transmission Date: 20120928
  Serious: No
  Sender: FDA-Public Use
  Company Number: US-AMGEN-USASP2012040783

PATIENT
  Age: 59 Year
  Sex: Male

DRUGS (2)
  1. ENBREL [Suspect]
     Indication: RHEUMATOID ARTHRITIS
     Dosage: 25 MG, UNK, EVERY 5 TO7 DAYS
     Route: 058
     Dates: start: 19990701, end: 20110901
  2. TREXALL [Concomitant]
     Dosage: 1 MG, UNK
     Dates: start: 19990101

REACTIONS (5)
  - HYPERTENSION [None]
  - CELLULITIS [None]
  - DRUG INTERACTION [None]
  - SOMNOLENCE [None]
  - RHEUMATOID ARTHRITIS [None]
